FAERS Safety Report 4530499-1 (Version None)
Quarter: 2004Q4

REPORT INFORMATION
  Report Type: 
  Country: None (occurrence: None)
  Receive Date: 20041216
  Receipt Date: 20041206
  Transmission Date: 20050328
  Serious: Yes (Other)
  Sender: FDA-Public Use
  Company Number: HQWYE860408DEC04

PATIENT
  Age: 27 Year
  Sex: Female

DRUGS (4)
  1. RHINADVIL (IBUPROFEN/PSEUDOEPHEDRINE, TABLET) [Suspect]
     Dosage: 20 TABLETS DAILY
     Route: 048
  2. AMOICILLIN (AMOXICILLIN, ) [Suspect]
  3. LEXOMIL (BROMAZEPAM, ) [Suspect]
  4. NAUSICALM (DIMEHYDRINATE, ) [Suspect]

REACTIONS (2)
  - DRUG ABUSER [None]
  - OVERDOSE [None]
